FAERS Safety Report 7007651-9 (Version None)
Quarter: 2010Q3

REPORT INFORMATION
  Report Type: 
  Country: None (occurrence: None)
  Receive Date: 20100922
  Receipt Date: 20100915
  Transmission Date: 20110219
  Serious: Yes (Other)
  Sender: FDA-Public Use
  Company Number: US-PFIZER INC-2010117128

PATIENT
  Sex: Female
  Weight: 91 kg

DRUGS (2)
  1. CHANTIX [Suspect]
     Indication: SMOKING CESSATION THERAPY
     Dosage: 0.5 MG, 2X/DAY
     Route: 048
     Dates: start: 20100904, end: 20100912
  2. CELEXA [Concomitant]
     Indication: DIVERTICULITIS
     Dosage: 40 MG, 1X/DAY
     Route: 048

REACTIONS (5)
  - DEPRESSED MOOD [None]
  - DISTURBANCE IN ATTENTION [None]
  - NAUSEA [None]
  - PSYCHIATRIC SYMPTOM [None]
  - SLEEP DISORDER [None]
